FAERS Safety Report 15265419 (Version 1)
Quarter: 2018Q3

REPORT INFORMATION
  Report Type: Spontaneous
  Country: US (occurrence: US)
  Receive Date: 20180723
  Receipt Date: 20180723
  Transmission Date: 20181010
  Serious: Yes (Death)
  Sender: FDA-Public Use
  Company Number: None

PATIENT
  Sex: Male

DRUGS (2)
  1. HALOPERIDOL, LORAZAPAM, LEVOTHYROXIN [Concomitant]
  2. GRANIX [Suspect]
     Active Substance: TBO-FILGRASTIM
     Indication: HYPOTHYROIDISM

REACTIONS (1)
  - Death [None]
